FAERS Safety Report 7372517-1 (Version None)
Quarter: 2011Q1

REPORT INFORMATION
  Report Type: 
  Country: None (occurrence: None)
  Receive Date: 20110324
  Receipt Date: 20110317
  Transmission Date: 20110831
  Serious: Yes (Other)
  Sender: FDA-Public Use
  Company Number: MX-GILEAD-2011-0037689

PATIENT
  Sex: Male

DRUGS (3)
  1. ZIDOVUDINE [Concomitant]
     Dates: start: 20101008
  2. RITONAVIR [Concomitant]
     Dates: start: 20100808
  3. TRUVADA [Suspect]
     Indication: HIV INFECTION
     Dates: start: 20101008, end: 20110317

REACTIONS (4)
  - ANAEMIA [None]
  - DYSURIA [None]
  - CREATININE RENAL CLEARANCE ABNORMAL [None]
  - OEDEMA [None]
